FAERS Safety Report 6837189-0 (Version None)
Quarter: 2010Q3

REPORT INFORMATION
  Report Type: 
  Country: None (occurrence: None)
  Receive Date: 20100713
  Receipt Date: 20070504
  Transmission Date: 20110219
  Serious: No
  Sender: FDA-Public Use
  Company Number: US-PFIZER INC-2007038096

PATIENT
  Age: 41 Year
  Sex: Female

DRUGS (3)
  1. CHANTIX [Suspect]
     Indication: SMOKING CESSATION THERAPY
     Dates: start: 20070430
  2. ANTIMIGRAINE PREPARATIONS [Concomitant]
     Indication: MIGRAINE
  3. ANTIMIGRAINE PREPARATIONS [Concomitant]

REACTIONS (4)
  - ACTIVITIES OF DAILY LIVING IMPAIRED [None]
  - CHEST DISCOMFORT [None]
  - DECREASED APPETITE [None]
  - VOMITING [None]
